FAERS Safety Report 7801792-1 (Version None)
Quarter: 2011Q4

REPORT INFORMATION
  Report Type: 
  Country: None (occurrence: None)
  Receive Date: 20111007
  Receipt Date: 20111005
  Transmission Date: 20120403
  Serious: Yes (Other)
  Sender: FDA-Public Use
  Company Number: JP-PFIZER INC-2011237051

PATIENT
  Age: 18 Year
  Sex: Male

DRUGS (6)
  1. VANCOMYCIN [Concomitant]
     Indication: ACUTE RESPIRATORY DISTRESS SYNDROME
  2. MICAFUNGIN [Concomitant]
     Indication: SEPTIC SHOCK
     Dosage: UNK
  3. METHYLPREDNISOLONE [Suspect]
     Indication: ACUTE RESPIRATORY DISTRESS SYNDROME
  4. METHYLPREDNISOLONE [Suspect]
     Indication: SEPTIC SHOCK
     Dosage: UNK
  5. VANCOMYCIN [Concomitant]
     Indication: SEPTIC SHOCK
     Dosage: UNK
  6. MICAFUNGIN [Concomitant]
     Indication: ACUTE RESPIRATORY DISTRESS SYNDROME

REACTIONS (2)
  - PANCREATITIS ACUTE [None]
  - POSTERIOR REVERSIBLE ENCEPHALOPATHY SYNDROME [None]
